FAERS Safety Report 7826193-1 (Version None)
Quarter: 2011Q4

REPORT INFORMATION
  Report Type: 
  Country: None (occurrence: None)
  Receive Date: 20111020
  Receipt Date: 20111012
  Transmission Date: 20120403
  Serious: Yes (Hospitalization)
  Sender: FDA-Public Use
  Company Number: US-BIOGENIDEC-2011BI036681

PATIENT
  Age: 35 Year
  Sex: Female

DRUGS (2)
  1. KLONOPIN [Concomitant]
     Indication: BALANCE DISORDER
  2. TYSABRI [Suspect]
     Indication: MULTIPLE SCLEROSIS
     Route: 042
     Dates: start: 20110726

REACTIONS (2)
  - HYPOAESTHESIA [None]
  - FALL [None]
